FAERS Safety Report 15620482 (Version 8)
Quarter: 2023Q2

REPORT INFORMATION
  Report Type: Other
  Country: CA (occurrence: None)
  Receive Date: 20181115
  Receipt Date: 20230627
  Transmission Date: 20230722
  Serious: Yes (Death, Other)
  Sender: FDA-Public Use
  Company Number: CA-ROCHE-1749570

PATIENT
  Sex: Female
  Weight: 54.4 kg

DRUGS (19)
  1. ACTEMRA [Suspect]
     Active Substance: TOCILIZUMAB
     Indication: Neuromyelitis optica spectrum disorder
     Route: 042
     Dates: start: 20150819, end: 20180926
  2. ACTEMRA [Suspect]
     Active Substance: TOCILIZUMAB
     Route: 042
     Dates: start: 20170118
  3. ACTEMRA [Suspect]
     Active Substance: TOCILIZUMAB
     Route: 042
     Dates: start: 20170315
  4. ACTEMRA [Suspect]
     Active Substance: TOCILIZUMAB
     Route: 042
     Dates: start: 20170607
  5. ACTEMRA [Suspect]
     Active Substance: TOCILIZUMAB
     Route: 042
     Dates: start: 201708
  6. ACTEMRA [Suspect]
     Active Substance: TOCILIZUMAB
     Route: 042
     Dates: start: 201708
  7. RITUXAN [Suspect]
     Active Substance: RITUXIMAB
     Indication: Neuromyelitis optica spectrum disorder
     Route: 041
     Dates: start: 20150323
  8. RITUXAN [Suspect]
     Active Substance: RITUXIMAB
     Route: 042
     Dates: start: 20190115, end: 20190409
  9. RITUXAN [Suspect]
     Active Substance: RITUXIMAB
     Route: 042
     Dates: start: 20190725
  10. METHYLPREDNISOLONE [Suspect]
     Active Substance: METHYLPREDNISOLONE
     Indication: Premedication
     Route: 042
     Dates: start: 20150323
  11. LEVOTHYROXINE [Concomitant]
     Active Substance: LEVOTHYROXINE
  12. PREDNISONE [Concomitant]
     Active Substance: PREDNISONE
  13. AMLODIPINE [Concomitant]
     Active Substance: AMLODIPINE BESYLATE
  14. ASPIRIN [Concomitant]
     Active Substance: ASPIRIN
     Dosage: EVERY SECOND DAY
  15. ROSUVASTATIN [Concomitant]
     Active Substance: ROSUVASTATIN
  16. ASPIRIN [Concomitant]
     Active Substance: ASPIRIN
  17. PLAVIX [Concomitant]
     Active Substance: CLOPIDOGREL BISULFATE
  18. DIPHENHYDRAMINE HYDROCHLORIDE [Concomitant]
     Active Substance: DIPHENHYDRAMINE HYDROCHLORIDE
     Route: 048
     Dates: start: 20150323
  19. ACETAMINOPHEN [Concomitant]
     Active Substance: ACETAMINOPHEN
     Route: 048
     Dates: start: 20150323

REACTIONS (41)
  - Abdominal pain [Unknown]
  - Tooth fracture [Unknown]
  - Microvascular coronary artery disease [Unknown]
  - Blood pressure systolic increased [Unknown]
  - Intentional product use issue [Unknown]
  - Off label use [Unknown]
  - Headache [Unknown]
  - Urinary tract infection [Unknown]
  - Hypoaesthesia [Recovered/Resolved]
  - Paraesthesia [Recovered/Resolved]
  - Decreased appetite [Unknown]
  - Illness [Not Recovered/Not Resolved]
  - Heart rate decreased [Unknown]
  - Weight decreased [Unknown]
  - Bronchitis [Not Recovered/Not Resolved]
  - Nausea [Unknown]
  - Influenza like illness [Unknown]
  - Pain [Not Recovered/Not Resolved]
  - Gastrointestinal pain [Recovering/Resolving]
  - Myalgia [Unknown]
  - Musculoskeletal stiffness [Not Recovered/Not Resolved]
  - Arthralgia [Unknown]
  - Asthenia [Unknown]
  - Pain in extremity [Unknown]
  - Hypertension [Unknown]
  - Angina pectoris [Unknown]
  - Neuralgia [Not Recovered/Not Resolved]
  - Chest pain [Unknown]
  - Arterial occlusive disease [Unknown]
  - Malaise [Unknown]
  - Chest discomfort [Unknown]
  - Neurological symptom [Unknown]
  - Chest pain [Not Recovered/Not Resolved]
  - Death [Fatal]
  - Balance disorder [Recovering/Resolving]
  - Rheumatoid arthritis [Not Recovered/Not Resolved]
  - Somnolence [Unknown]
  - Blood pressure systolic abnormal [Unknown]
  - Cystitis [Unknown]
  - Abdominal pain upper [Unknown]
  - Cardiac disorder [Unknown]

NARRATIVE: CASE EVENT DATE: 20160101
